FAERS Safety Report 5526241-8 (Version None)
Quarter: 2007Q4

REPORT INFORMATION
  Report Type: 
  Country: None (occurrence: None)
  Receive Date: 20071127
  Receipt Date: 20071114
  Transmission Date: 20080405
  Serious: Yes (Death, Life-Threatening, Other)
  Sender: FDA-Public Use
  Company Number: FR-BAYER-200710615BFR

PATIENT
  Age: 51 Year
  Sex: Male

DRUGS (16)
  1. CIPROFLOXACIN HCL [Suspect]
     Indication: RESPIRATORY TRACT INFECTION
     Route: 042
     Dates: start: 20070401, end: 20070620
  2. TAZOCILLINE [Suspect]
     Indication: RESPIRATORY TRACT INFECTION
     Route: 042
     Dates: start: 20070327, end: 20070620
  3. HEPARIN SODIUM [Concomitant]
     Indication: UNEVALUABLE EVENT
     Dates: end: 20070417
  4. VANCOMYCIN [Concomitant]
     Indication: RESPIRATORY TRACT INFECTION
     Route: 042
     Dates: start: 20070327, end: 20070403
  5. AMIKACIN [Concomitant]
     Indication: RESPIRATORY TRACT INFECTION
     Route: 042
     Dates: start: 20070323, end: 20070409
  6. ZYVOX [Concomitant]
     Indication: RESPIRATORY TRACT INFECTION
     Route: 042
     Dates: start: 20070403, end: 20070409
  7. MIDAZOLAM HCL [Concomitant]
     Indication: UNEVALUABLE EVENT
  8. SUFENTA [Concomitant]
     Indication: UNEVALUABLE EVENT
  9. NIMBEX [Concomitant]
     Indication: UNEVALUABLE EVENT
  10. BUMETANIDE [Concomitant]
     Indication: UNEVALUABLE EVENT
  11. NORADRENALINE [Concomitant]
     Indication: UNEVALUABLE EVENT
  12. ERYTHROMYCIN ETHYLSUCCINATE [Concomitant]
     Indication: UNEVALUABLE EVENT
  13. SURBRONC [Concomitant]
     Indication: UNEVALUABLE EVENT
  14. MOPRAL [Concomitant]
     Indication: UNEVALUABLE EVENT
  15. LOVENOX [Concomitant]
     Indication: UNEVALUABLE EVENT
  16. CALCIPARINE [Concomitant]
     Indication: UNEVALUABLE EVENT

REACTIONS (9)
  - CYTOLYTIC HEPATITIS [None]
  - DERMATITIS [None]
  - DERMATITIS EXFOLIATIVE [None]
  - HAEMATURIA [None]
  - MONONUCLEOSIS SYNDROME [None]
  - MULTI-ORGAN FAILURE [None]
  - PANCYTOPENIA [None]
  - RECTAL HAEMORRHAGE [None]
  - RENAL FAILURE ACUTE [None]
